FAERS Safety Report 21189840 (Version 1)
Quarter: 2022Q3

REPORT INFORMATION
  Report Type: Spontaneous
  Country: GB (occurrence: GB)
  Receive Date: 20220809
  Receipt Date: 20220809
  Transmission Date: 20221026
  Serious: Yes (Hospitalization)
  Sender: FDA-Public Use
  Company Number: None

PATIENT
  Age: 31 Year
  Sex: Female

DRUGS (2)
  1. DALTEPARIN SODIUM [Suspect]
     Active Substance: DALTEPARIN SODIUM
     Dosage: 18,000 UNITS OD
  2. EDOXABAN [Concomitant]
     Active Substance: EDOXABAN
     Dosage: 60 MG, 1X/DAY

REACTIONS (4)
  - Tremor [Unknown]
  - Muscular weakness [Unknown]
  - Facial paralysis [Unknown]
  - Tongue paralysis [Unknown]
